FAERS Safety Report 21448204 (Version 1)
Quarter: 2022Q4

REPORT INFORMATION
  Report Type: Spontaneous
  Country: US (occurrence: None)
  Receive Date: 20221011
  Receipt Date: 20221011
  Transmission Date: 20230113
  Serious: No
  Sender: FDA-Public Use
  Company Number: None

PATIENT
  Age: 59 Year
  Sex: Female
  Weight: 112.04 kg

DRUGS (18)
  1. IMATINIB [Suspect]
     Active Substance: IMATINIB
     Indication: Philadelphia chromosome positive
     Dosage: FREQUENCY : DAILY;?
     Route: 048
     Dates: start: 202205, end: 20220921
  2. ACETAMINOPHEN [Concomitant]
     Active Substance: ACETAMINOPHEN
  3. ATORVASTATIN [Concomitant]
     Active Substance: ATORVASTATIN
  4. CYMBALTA [Concomitant]
     Active Substance: DULOXETINE HYDROCHLORIDE
  5. GLEEVEC [Concomitant]
     Active Substance: IMATINIB MESYLATE
  6. LIDOCAINE-SILICONE [Concomitant]
  7. LISINOPRIL [Concomitant]
     Active Substance: LISINOPRIL
  8. MAGOX [Concomitant]
  9. METHOCARBAMOL [Concomitant]
     Active Substance: METHOCARBAMOL
  10. METOPROLOL [Concomitant]
     Active Substance: METOPROLOL
  11. NEURONTIN [Concomitant]
     Active Substance: GABAPENTIN
  12. PERCOCET [Concomitant]
     Active Substance: ACETAMINOPHEN\OXYCODONE HYDROCHLORIDE
  13. POTASSIUM CHLORIDE [Concomitant]
     Active Substance: POTASSIUM CHLORIDE
  14. TIKOSYN [Concomitant]
     Active Substance: DOFETILIDE
  15. TORSEMIDE [Concomitant]
     Active Substance: TORSEMIDE
  16. TRAMADOL HYDROCHLORIDE [Concomitant]
     Active Substance: TRAMADOL HYDROCHLORIDE
  17. TRULICITY [Concomitant]
     Active Substance: DULAGLUTIDE
  18. VITAMIN D3 [Concomitant]
     Active Substance: CHOLECALCIFEROL

REACTIONS (2)
  - Rash [None]
  - Hepatic enzyme increased [None]
